FAERS Safety Report 5067232-3 (Version None)
Quarter: 2006Q3

REPORT INFORMATION
  Report Type: 
  Country: None (occurrence: None)
  Receive Date: 20060727
  Receipt Date: 20060717
  Transmission Date: 20061208
  Serious: Yes (Other)
  Sender: FDA-Public Use
  Company Number: 2006088809

PATIENT
  Sex: Female

DRUGS (1)
  1. DEPO-PROVERA [Suspect]
     Indication: CONTRACEPTION
     Dosage: 150 MG (150 MG, SINGLE INJECTION)
     Dates: start: 20060411, end: 20060411

REACTIONS (8)
  - ABDOMINAL DISTENSION [None]
  - BREAST PAIN [None]
  - DEPRESSION [None]
  - MALAISE [None]
  - NECK PAIN [None]
  - PAIN IN EXTREMITY [None]
  - PAIN IN JAW [None]
  - WEIGHT DECREASED [None]
